FAERS Safety Report 6343651-X (Version None)
Quarter: 2009Q3

REPORT INFORMATION
  Report Type: 
  Country: None (occurrence: None)
  Receive Date: 20090908
  Receipt Date: 20090827
  Transmission Date: 20100115
  Serious: Yes (Hospitalization, Other)
  Sender: FDA-Public Use
  Company Number: JP-ROCHE-645309

PATIENT
  Sex: Female
  Weight: 41 kg

DRUGS (20)
  1. CELLCEPT [Suspect]
     Route: 048
     Dates: start: 20090112, end: 20090507
  2. CELLCEPT [Suspect]
     Dosage: DOSE DECREASED
     Route: 048
     Dates: start: 20090508, end: 20090522
  3. CELLCEPT [Suspect]
     Route: 048
     Dates: start: 20090523, end: 20090615
  4. TACROLIMUS [Concomitant]
     Dosage: DRUG NAME REPORTED AS GRACEPTOR; GENERIC NAME: TACROLIMUS HYDRATE
     Route: 048
     Dates: start: 20090112, end: 20090120
  5. TACROLIMUS [Concomitant]
     Route: 048
     Dates: start: 20090121, end: 20090220
  6. TACROLIMUS [Concomitant]
     Route: 048
     Dates: start: 20090221, end: 20090306
  7. TACROLIMUS [Concomitant]
     Route: 048
     Dates: start: 20090307, end: 20090327
  8. TACROLIMUS [Concomitant]
     Route: 048
     Dates: start: 20090328, end: 20090724
  9. SIMULECT [Concomitant]
     Route: 042
     Dates: start: 20090115, end: 20090115
  10. SIMULECT [Concomitant]
     Dosage: DRUG NAME REPORTED AS SIMULECT (BASILIXIMAB(GENETICAL COMBINATION)
     Route: 042
     Dates: start: 20090119, end: 20090119
  11. SOL-MELCORT [Concomitant]
     Route: 042
     Dates: start: 20090115, end: 20090115
  12. SOL-MELCORT [Concomitant]
     Route: 042
     Dates: start: 20090116, end: 20090118
  13. PROGRAF [Concomitant]
     Route: 042
     Dates: start: 20090115, end: 20090117
  14. MEDROL [Concomitant]
     Route: 048
     Dates: start: 20090119, end: 20090121
  15. MEDROL [Concomitant]
     Route: 048
     Dates: start: 20090122, end: 20090219
  16. MEDROL [Concomitant]
     Route: 048
     Dates: start: 20090220, end: 20090724
  17. CEFAMEZIN [Concomitant]
     Route: 042
     Dates: start: 20090115, end: 20090117
  18. ULTIVA [Concomitant]
     Route: 042
     Dates: start: 20090115, end: 20090115
  19. FENTANYL [Concomitant]
     Route: 042
     Dates: start: 20090115, end: 20090115
  20. SULFAMETHOXAZOLE AND TRIMETHOPRIM [Concomitant]
     Route: 048
     Dates: start: 20090127, end: 20090409

REACTIONS (2)
  - AGRANULOCYTOSIS [None]
  - LOSS OF CONSCIOUSNESS [None]
